FAERS Safety Report 21233249 (Version 4)
Quarter: 2023Q2

REPORT INFORMATION
  Report Type: Report from Study
  Country: US (occurrence: US)
  Receive Date: 20220819
  Receipt Date: 20230613
  Transmission Date: 20230721
  Serious: Yes (Death, Other)
  Sender: FDA-Public Use
  Company Number: US-ARGENX-2022-ARGX-US001512

PATIENT
  Age: 63 Year
  Sex: Female
  Weight: 69.8 kg

DRUGS (1)
  1. VYVGART [Suspect]
     Active Substance: EFGARTIGIMOD ALFA-FCAB
     Indication: Myasthenia gravis
     Dosage: UNK
     Route: 042
     Dates: start: 20221215

REACTIONS (3)
  - Death [Fatal]
  - Paraganglion neoplasm malignant [Unknown]
  - COVID-19 [Unknown]

NARRATIVE: CASE EVENT DATE: 20220606
